FAERS Safety Report 9643981 (Version 1)
Quarter: 2013Q4

REPORT INFORMATION
  Report Type: Spontaneous
  Country: ES (occurrence: None)
  Receive Date: 20131023
  Receipt Date: 20131023
  Transmission Date: 20140711
  Serious: Yes (Death, Hospitalization)
  Sender: FDA-Public Use
  Company Number: 2013AP009139

PATIENT
  Age: 90 Year
  Sex: Female

DRUGS (3)
  1. RISPERIDONE (RISPERIDONE) [Suspect]
  2. FUROSEMIDE (FUROSEMIDE) [Suspect]
     Indication: ACUTE MYOCARDIAL INFARCTION
  3. FUROSEMIDE (FUROSEMIDE) [Suspect]
     Indication: ACUTE PULMONARY OEDEMA

REACTIONS (4)
  - Pemphigoid [None]
  - Ulcer [None]
  - Sepsis [None]
  - Drug ineffective [None]
